FAERS Safety Report 8306712-1 (Version None)
Quarter: 2012Q1

REPORT INFORMATION
  Report Type: 
  Country: None (occurrence: None)
  Receive Date: 20120327
  Receipt Date: 20100312
  Transmission Date: 20120608
  Serious: Yes (Other)
  Sender: FDA-Public Use
  Company Number: PHEH2009US10329

PATIENT
  Age: 71 Year
  Sex: Female

DRUGS (7)
  1. SYNTHROID [Concomitant]
  2. ASPIRIN [Concomitant]
  3. PRILOSEC [Concomitant]
  4. ZOCOR [Concomitant]
  5. GLEEVEC [Suspect]
     Indication: BREAST CANCER
     Dosage: 400 MG, QD, ORAL
     Route: 048
     Dates: start: 20081022
  6. ATENOLOL [Concomitant]
  7. FOSAMAX [Concomitant]

REACTIONS (9)
  - CONSTIPATION [None]
  - HEART RATE IRREGULAR [None]
  - WEIGHT INCREASED [None]
  - PALPITATIONS [None]
  - ORBITAL OEDEMA [None]
  - ABDOMINAL DISTENSION [None]
  - NAUSEA [None]
  - PERIORBITAL OEDEMA [None]
  - ANAEMIA [None]
